FAERS Safety Report 9173256 (Version 1)
Quarter: 2013Q1

REPORT INFORMATION
  Report Type: Spontaneous
  Country: US (occurrence: None)
  Receive Date: 20130319
  Receipt Date: 20130319
  Transmission Date: 20140127
  Serious: Yes (Other)
  Sender: FDA-Public Use
  Company Number: None

PATIENT
  Age: 32 Year
  Sex: Female
  Weight: 90.72 kg

DRUGS (1)
  1. XIFAXAN [Suspect]
     Route: 048
     Dates: start: 20130317, end: 20130318

REACTIONS (5)
  - Nausea [None]
  - Dizziness [None]
  - Tremor [None]
  - Headache [None]
  - Fatigue [None]
